FAERS Safety Report 19118886 (Version 1)
Quarter: 2021Q2

REPORT INFORMATION
  Report Type: Spontaneous
  Country: CA (occurrence: CA)
  Receive Date: 20210410
  Receipt Date: 20210410
  Transmission Date: 20210717
  Serious: Yes (Other)
  Sender: FDA-Public Use
  Company Number: CA-TEVA-2021-CA-1898491

PATIENT
  Sex: Female

DRUGS (5)
  1. PREDNISONE. [Suspect]
     Active Substance: PREDNISONE
     Dosage: ON AND OFF 3 TIMES, DOSE UNKNOWN
     Dates: start: 2017, end: 2020
  2. OLUMIANT [Suspect]
     Active Substance: BARICITINIB
     Dates: start: 2019, end: 2019
  3. FOLIC ACID. [Concomitant]
     Active Substance: FOLIC ACID
     Dates: start: 2020
  4. SIMPONI [Concomitant]
     Active Substance: GOLIMUMAB
     Dosage: UNKNOWN DOSE.
     Dates: start: 2019, end: 2020
  5. METHOTREXATE. [Concomitant]
     Active Substance: METHOTREXATE
     Dates: start: 2020

REACTIONS (3)
  - Weight increased [Unknown]
  - Swelling face [Unknown]
  - Mental disorder [Unknown]
